FAERS Safety Report 9078435 (Version 1)
Quarter: 2013Q1

REPORT INFORMATION
  Report Type: Spontaneous
  Country: DK (occurrence: DK)
  Receive Date: 20130130
  Receipt Date: 20130130
  Transmission Date: 20140127
  Serious: Yes (Hospitalization)
  Sender: FDA-Public Use
  Company Number: DK-ASTRAZENECA-2013SE04691

PATIENT
  Age: 50 Year
  Sex: Male

DRUGS (6)
  1. BUDESONIDE/FORMOTEROL [Suspect]
     Indication: ASTHMA
     Route: 055
  2. TERBUTALINE [Suspect]
     Indication: ASTHMA
     Route: 055
  3. SALBUTAMOL [Suspect]
     Indication: ASTHMA
     Route: 055
  4. ATENOLOL [Concomitant]
     Indication: HYPERTENSION
     Route: 048
  5. RAMIPRIL/HYDROCHLORTIAZIDE [Concomitant]
     Indication: HYPERTENSION
     Route: 048
  6. METHYLPREDNISOLONE [Concomitant]
     Dosage: 80 MG
     Route: 042

REACTIONS (7)
  - Blood lactic acid [Recovered/Resolved]
  - Cough [Recovered/Resolved]
  - Dyspnoea [Recovered/Resolved]
  - Hypokalaemia [Recovered/Resolved]
  - Respiration abnormal [Recovered/Resolved]
  - Tachycardia [Recovered/Resolved]
  - Blood pressure increased [Recovered/Resolved]
